FAERS Safety Report 23696178 (Version 1)
Quarter: 2024Q2

REPORT INFORMATION
  Report Type: Spontaneous
  Country: GB (occurrence: GB)
  Receive Date: 20240402
  Receipt Date: 20240402
  Transmission Date: 20240717
  Serious: Yes (Other)
  Sender: FDA-Public Use
  Company Number: GB-ALKEM LABORATORIES LIMITED-GB-ALKEM-2023-01894

PATIENT
  Age: 60 Year
  Sex: Male

DRUGS (1)
  1. QUETIAPINE FUMARATE [Suspect]
     Active Substance: QUETIAPINE FUMARATE
     Indication: Schizoaffective disorder
     Dosage: 750 MG/DAY
     Route: 065

REACTIONS (2)
  - Dry mouth [Recovered/Resolved]
  - Dysphagia [Recovered/Resolved]
